FAERS Safety Report 17420720 (Version 2)
Quarter: 2020Q3

REPORT INFORMATION
  Report Type: Spontaneous
  Country: IT (occurrence: IT)
  Receive Date: 20200214
  Receipt Date: 20200301
  Transmission Date: 20201104
  Serious: Yes (Other)
  Sender: FDA-Public Use
  Company Number: NVSC2020IT035887

PATIENT
  Age: 64 Year
  Sex: Female

DRUGS (9)
  1. ALECTINIB. [Suspect]
     Active Substance: ALECTINIB
     Dosage: UNK, (THERAPY RESTARTED AT THE REDUCED DOSE)
     Route: 065
  2. ALECTINIB. [Suspect]
     Active Substance: ALECTINIB
     Dosage: 4 DF, QD, SECOND DOSE REDUCTION (2 CAPSULES IN THE MORNING AND 2 CAPSULES IN THE EVENING) THERAPY IN
     Route: 065
  3. TARGIN [Concomitant]
     Active Substance: NALOXONE HYDROCHLORIDE\OXYCODONE HYDROCHLORIDE
     Indication: PRODUCT USED FOR UNKNOWN INDICATION
     Route: 065
  4. BRUFEN [Concomitant]
     Active Substance: IBUPROFEN
     Indication: PRODUCT USED FOR UNKNOWN INDICATION
     Dosage: 600 MG
     Route: 065
  5. ALECTINIB. [Suspect]
     Active Substance: ALECTINIB
     Dosage: 8 DF, QD, (4 CAPSULES IN THE MORNING AND 4 CAPSULES IN THE EVENING  )
     Route: 065
     Dates: start: 20190806
  6. NOVALGIN (METAMIZOLE SODIUM) [Concomitant]
     Active Substance: METAMIZOLE SODIUM
     Indication: PRODUCT USED FOR UNKNOWN INDICATION
     Dosage: 3 X 30 DROPS
     Route: 065
  7. ZOMETA [Suspect]
     Active Substance: ZOLEDRONIC ACID
     Indication: PRODUCT USED FOR UNKNOWN INDICATION
     Dosage: 4 MG
     Route: 065
     Dates: start: 20190819
  8. ALECTINIB. [Suspect]
     Active Substance: ALECTINIB
     Indication: LUNG ADENOCARCINOMA
     Dosage: 150 MG (4 CAPSULES IN THE MORNING AND 4 CAPSULES IN THE EVENING)
     Route: 048
     Dates: start: 20190806
  9. ALECTINIB. [Suspect]
     Active Substance: ALECTINIB
     Dosage: UNK, FIRST DOSE REDUCTION (DETAILS UNSPECIFIED)
     Route: 065

REACTIONS (5)
  - Blood creatine phosphokinase increased [Unknown]
  - Nausea [Unknown]
  - Oedema [Unknown]
  - Vomiting [Unknown]
  - Interstitial lung disease [Recovered/Resolved]

NARRATIVE: CASE EVENT DATE: 20190828
